FAERS Safety Report 11450626 (Version 1)
Quarter: 2015Q3

REPORT INFORMATION
  Report Type: Report from Study
  Country: TR (occurrence: TR)
  Receive Date: 20150903
  Receipt Date: 20150903
  Transmission Date: 20151125
  Serious: Yes (Other)
  Sender: FDA-Public Use
  Company Number: PHHY2015TR102888

PATIENT
  Sex: Male
  Weight: 29 kg

DRUGS (3)
  1. SOMATROPIN [Suspect]
     Active Substance: SOMATROPIN
     Route: 058
     Dates: end: 201507
  2. SOMATROPIN [Suspect]
     Active Substance: SOMATROPIN
     Indication: GROWTH HORMONE DEFICIENCY
     Dosage: 0.8 MG, ONCE/SINGLE
     Route: 058
     Dates: start: 20131217
  3. SOMATROPIN [Suspect]
     Active Substance: SOMATROPIN
     Dosage: 0.9 MG, ONCE/SINGLE
     Route: 058

REACTIONS (2)
  - Hypercholesterolaemia [Not Recovered/Not Resolved]
  - Hyperglycaemia [Not Recovered/Not Resolved]
